FAERS Safety Report 12392437 (Version 1)
Quarter: 2016Q2

REPORT INFORMATION
  Report Type: Spontaneous
  Country: US (occurrence: None)
  Receive Date: 20160520
  Receipt Date: 20160520
  Transmission Date: 20160815
  Serious: No
  Sender: FDA-Public Use
  Company Number: None

PATIENT
  Age: 74 Year
  Sex: Male

DRUGS (1)
  1. GLEEVEC [Suspect]
     Active Substance: IMATINIB MESYLATE
     Indication: CHRONIC MYELOID LEUKAEMIA (IN REMISSION)

REACTIONS (4)
  - Weight decreased [None]
  - Condition aggravated [None]
  - Lacrimation increased [None]
  - Ageusia [None]

NARRATIVE: CASE EVENT DATE: 20160519
